FAERS Safety Report 10094748 (Version 1)
Quarter: 2014Q2

REPORT INFORMATION
  Report Type: Spontaneous
  Country: US (occurrence: US)
  Receive Date: 20140422
  Receipt Date: 20140422
  Transmission Date: 20141212
  Serious: No
  Sender: FDA-Public Use
  Company Number: US-PFIZER INC-2014108300

PATIENT
  Age: 59 Year
  Sex: Female
  Weight: 49.43 kg

DRUGS (3)
  1. COLESTID [Suspect]
     Indication: FREQUENT BOWEL MOVEMENTS
     Dosage: 1 G, 3X/DAY
     Dates: start: 201308, end: 20140414
  2. PREMPRO [Concomitant]
     Indication: HORMONE THERAPY
     Dosage: UNK, DAILY
  3. SYNTHROID [Concomitant]
     Indication: THYROID DISORDER
     Dosage: 75 UG, DAILY

REACTIONS (1)
  - Drug ineffective [Unknown]
